FAERS Safety Report 19658923 (Version 3)
Quarter: 2021Q3

REPORT INFORMATION
  Report Type: Report from Study
  Country: MX (occurrence: MX)
  Receive Date: 20210804
  Receipt Date: 20210901
  Transmission Date: 20211014
  Serious: Yes (Hospitalization, Other)
  Sender: FDA-Public Use
  Company Number: NVSC2021MX175545

PATIENT
  Age: 74 Year
  Sex: Male
  Weight: 96 kg

DRUGS (6)
  1. SPIRONOLACTONE. [Concomitant]
     Active Substance: SPIRONOLACTONE
     Indication: DIURETIC THERAPY
     Dosage: 1 DF, QD
     Route: 048
     Dates: start: 20201007
  2. MELATONIN [Concomitant]
     Active Substance: MELATONIN
     Indication: INSOMNIA
     Dosage: 1 UNK, QD
     Route: 048
     Dates: start: 20201007
  3. OMEPRAZOLE. [Concomitant]
     Active Substance: OMEPRAZOLE
     Indication: GASTRIC ULCER
     Dosage: 1 UNK, QD
     Route: 048
     Dates: start: 20201007
  4. BLODIVIT [Suspect]
     Active Substance: ATORVASTATIN CALCIUM
     Indication: CARDIAC FAILURE
     Dosage: 1 DF, QD
     Route: 048
     Dates: start: 20201007
  5. ENTRESTO [Suspect]
     Active Substance: SACUBITRIL\VALSARTAN
     Indication: CARDIAC FAILURE
     Dosage: 1 DF, QD
     Route: 048
     Dates: start: 20201007
  6. ASPIRIN PROTECT [Concomitant]
     Active Substance: ASPIRIN
     Indication: ANTICOAGULANT THERAPY
     Dosage: 1 UNK, QD (AT NIGHT)
     Route: 048
     Dates: start: 20201007

REACTIONS (4)
  - Cerebral infarction [Recovered/Resolved]
  - Off label use [Unknown]
  - Language disorder [Recovered/Resolved]
  - Vascular dementia [Not Recovered/Not Resolved]

NARRATIVE: CASE EVENT DATE: 20201007
